FAERS Safety Report 9980467 (Version 2)
Quarter: 2014Q2

REPORT INFORMATION
  Report Type: Report from Study
  Country: JP (occurrence: JP)
  Receive Date: 20140307
  Receipt Date: 20140404
  Transmission Date: 20141212
  Serious: Yes (Other)
  Sender: FDA-Public Use
  Company Number: JP-ROCHE-1357952

PATIENT
  Sex: 0

DRUGS (4)
  1. TRASTUZUMAB [Suspect]
     Indication: HER-2 POSITIVE GASTRIC CANCER
     Dosage: ON DAY 1 OF 1ST COURSE
     Route: 042
  2. TRASTUZUMAB [Suspect]
     Dosage: FROM 2ND  COURSE
     Route: 065
  3. CISPLATIN [Suspect]
     Indication: HER-2 POSITIVE GASTRIC CANCER
     Dosage: ON DAY 1
     Route: 042
  4. S-1 [Suspect]
     Indication: HER-2 POSITIVE GASTRIC CANCER
     Dosage: DOSE BASED ON BODY SURFACE AREA ({1.25 M2: 40 MG; }/=1.25 TO {1.5 M2: 50 MG; }/=1.5 M2: 60 MG) ON DA
     Route: 048

REACTIONS (13)
  - Leukopenia [Unknown]
  - Neutropenia [Unknown]
  - Anaemia [Unknown]
  - Febrile neutropenia [Unknown]
  - Blood creatinine increased [Unknown]
  - Hypoalbuminaemia [Unknown]
  - Decreased appetite [Unknown]
  - Diarrhoea [Unknown]
  - Vomiting [Unknown]
  - Fatigue [Unknown]
  - Nausea [Unknown]
  - Hypertension [Unknown]
  - Stomatitis [Unknown]
